FAERS Safety Report 5303298-0 (Version None)
Quarter: 2007Q2

REPORT INFORMATION
  Report Type: 
  Country: None (occurrence: None)
  Receive Date: 20070420
  Receipt Date: 20070413
  Transmission Date: 20071010
  Serious: Yes (Disabling)
  Sender: FDA-Public Use
  Company Number: NL-GLAXOSMITHKLINE-B0462544A

PATIENT
  Age: 36 Year
  Sex: Female
  Weight: 54 kg

DRUGS (1)
  1. SEROXAT [Suspect]
     Indication: DEPRESSION
     Route: 048
     Dates: start: 20040203, end: 20041105

REACTIONS (4)
  - DISABILITY [None]
  - DRUG PRESCRIBING ERROR [None]
  - NERVOUS SYSTEM DISORDER [None]
  - PARAESTHESIA [None]
